FAERS Safety Report 6951580-3 (Version None)
Quarter: 2010Q3

REPORT INFORMATION
  Report Type: 
  Country: None (occurrence: None)
  Receive Date: 20100828
  Receipt Date: 20100330
  Transmission Date: 20110219
  Serious: No
  Sender: FDA-Public Use
  Company Number: US-ABBOTT-10P-163-0636381-00

PATIENT
  Sex: Male
  Weight: 56.75 kg

DRUGS (11)
  1. NIASPAN [Suspect]
     Indication: HIGH DENSITY LIPOPROTEIN DECREASED
     Dates: start: 20050101, end: 20090101
  2. NIASPAN [Suspect]
     Dates: start: 20090101, end: 20100201
  3. NIASPAN [Suspect]
     Dates: start: 20100201, end: 20100301
  4. NIASPAN [Suspect]
     Dates: start: 20100301, end: 20100301
  5. LISINOPRIL [Suspect]
     Indication: HYPERTENSION
     Dates: start: 20100201, end: 20100301
  6. SIMVASTATIN [Concomitant]
     Indication: BLOOD CHOLESTEROL INCREASED
  7. FUROSEMIDE [Concomitant]
     Indication: CORONARY ARTERY BYPASS
     Dates: start: 20020101
  8. POTASSIUM [Concomitant]
     Indication: ELECTROLYTE SUBSTITUTION THERAPY
     Dates: start: 20020101
  9. PLAVIX [Concomitant]
     Indication: CORONARY ARTERY BYPASS
     Dates: start: 20020101
  10. ASPIRIN [Concomitant]
     Indication: CORONARY ARTERY BYPASS
     Dates: start: 20020101
  11. FLOMAX [Concomitant]
     Indication: PROSTATIC DISORDER

REACTIONS (2)
  - DIARRHOEA [None]
  - HIGH DENSITY LIPOPROTEIN DECREASED [None]
